FAERS Safety Report 11205126 (Version 1)
Quarter: 2015Q2

REPORT INFORMATION
  Report Type: Report from Study
  Country: CA (occurrence: CA)
  Receive Date: 20150622
  Receipt Date: 20150622
  Transmission Date: 20150821
  Serious: Yes (Hospitalization, Other)
  Sender: FDA-Public Use
  Company Number: CA-JNJFOC-20150611351

PATIENT
  Age: 29 Year
  Sex: Female
  Weight: 74 kg

DRUGS (1)
  1. REMICADE [Suspect]
     Active Substance: INFLIXIMAB
     Indication: CROHN^S DISEASE
     Route: 042
     Dates: start: 20140929

REACTIONS (16)
  - Cervical spinal stenosis [Unknown]
  - Suffocation feeling [Recovered/Resolved]
  - Vomiting [Recovered/Resolved]
  - Flushing [Recovered/Resolved]
  - Hypoaesthesia [Unknown]
  - Feeling abnormal [Recovered/Resolved]
  - Abdominal pain [Recovered/Resolved]
  - Blood pressure decreased [Recovered/Resolved]
  - Monoplegia [Unknown]
  - Nausea [Recovered/Resolved]
  - Weight increased [Unknown]
  - Abdominal distension [Unknown]
  - Infusion related reaction [Recovered/Resolved]
  - Incontinence [Recovered/Resolved]
  - Spinal osteoarthritis [Unknown]
  - Dyspnoea [Recovered/Resolved]

NARRATIVE: CASE EVENT DATE: 20150612
